FAERS Safety Report 7073889-8 (Version None)
Quarter: 2010Q4

REPORT INFORMATION
  Report Type: 
  Country: None (occurrence: None)
  Receive Date: 20101029
  Receipt Date: 20101020
  Transmission Date: 20110411
  Serious: Yes (Hospitalization)
  Sender: FDA-Public Use
  Company Number: GB-PURDUE-GBR-2010-0007224

PATIENT
  Age: 67 Year
  Sex: Male
  Weight: 74.5 kg

DRUGS (11)
  1. MORPHINE SULFATE [Suspect]
     Indication: PRODUCT USED FOR UNKNOWN INDICATION
     Route: 048
  2. AMITRIPTYLINE HCL [Concomitant]
     Dosage: 1 DF, DAILY
     Route: 048
     Dates: start: 20100713
  3. DICLOFENAC SODIUM [Concomitant]
     Dosage: 2 DF, DAILY
     Route: 065
     Dates: start: 20100713
  4. FENTANYL CITRATE [Concomitant]
     Dosage: UNK
     Route: 065
  5. GABAPENTIN [Concomitant]
     Dosage: 3 DF, DAILY
     Route: 065
     Dates: start: 20100712, end: 20100712
  6. LEVOTHYROXINE [Concomitant]
     Dosage: 1 DF, DAILY
     Route: 065
  7. OMEPRAZOLE [Concomitant]
     Dosage: 1 DF, DAILY
     Route: 065
  8. PARACETAMOL [Concomitant]
     Dosage: 4 DF, DAILY
     Route: 065
  9. PLACEBO [Concomitant]
     Route: 065
  10. PREDNISOLONE [Concomitant]
     Route: 065
  11. QUININE SULFATE [Concomitant]
     Dosage: 1 DF, DAILY
     Route: 065

REACTIONS (1)
  - URINARY TRACT INFECTION [None]
